FAERS Safety Report 7171123-1 (Version None)
Quarter: 2010Q4

REPORT INFORMATION
  Report Type: 
  Country: None (occurrence: None)
  Receive Date: 20101217
  Receipt Date: 20101108
  Transmission Date: 20110411
  Serious: Yes (Other)
  Sender: FDA-Public Use
  Company Number: PHHY2010JP69810

PATIENT
  Age: 86 Year
  Sex: Male

DRUGS (12)
  1. FAMVIR [Suspect]
     Indication: HERPES ZOSTER
     Dosage: 1500 MG, PER DAY
     Route: 048
     Dates: start: 20101004, end: 20101007
  2. FAMVIR [Suspect]
     Dosage: 1000 MG, PER DAY
     Route: 048
     Dates: start: 20101008, end: 20101012
  3. LOXOPROFEN SODIUM [Concomitant]
     Dosage: UNK
     Dates: start: 20101004, end: 20101011
  4. LANSOPRAZOLE [Concomitant]
     Dosage: UNK
     Dates: start: 20101004, end: 20101011
  5. AMITRIPTYLINE HCL [Concomitant]
     Dosage: UNK
     Dates: start: 20101004, end: 20101011
  6. GABAPENTIN [Concomitant]
     Dosage: UNK
     Dates: start: 20101004, end: 20101007
  7. LASIX [Concomitant]
  8. TELMISARTAN [Concomitant]
     Dosage: UNK
  9. CETIRIZINE HYDROCHLORIDE [Concomitant]
     Dosage: UNK
  10. ETHYL ICOSAPENTATE [Concomitant]
     Dosage: UNK
  11. MAGNESIUM OXIDE [Concomitant]
     Dosage: UNK
  12. SENNOSIDE [Concomitant]
     Dosage: UNK

REACTIONS (8)
  - ASTHENIA [None]
  - BLOOD PRESSURE DIASTOLIC DECREASED [None]
  - DECREASED APPETITE [None]
  - DIZZINESS [None]
  - DYSSTASIA [None]
  - MALAISE [None]
  - OEDEMA PERIPHERAL [None]
  - URINE OUTPUT DECREASED [None]
